FAERS Safety Report 9874792 (Version 1)
Quarter: 2014Q1

REPORT INFORMATION
  Report Type: Spontaneous
  Country: US (occurrence: None)
  Receive Date: 20140205
  Receipt Date: 20140205
  Transmission Date: 20141002
  Serious: No
  Sender: FDA-Public Use
  Company Number: None

PATIENT
  Age: 44 Year
  Sex: Female
  Weight: 117.94 kg

DRUGS (2)
  1. TOPAMAX [Suspect]
     Indication: HEADACHE
     Route: 048
     Dates: start: 20131203
  2. TOPAMAX [Suspect]
     Indication: PROPHYLAXIS
     Route: 048
     Dates: start: 20131203

REACTIONS (9)
  - Mood swings [None]
  - Hypoaesthesia [None]
  - Hypoaesthesia [None]
  - Vision blurred [None]
  - Visual acuity reduced transiently [None]
  - Vision blurred [None]
  - Dry eye [None]
  - Catatonia [None]
  - Dehydration [None]
